FAERS Safety Report 7863179-5 (Version None)
Quarter: 2011Q4

REPORT INFORMATION
  Report Type: 
  Country: None (occurrence: None)
  Receive Date: 20111027
  Receipt Date: 20101129
  Transmission Date: 20120403
  Serious: No
  Sender: FDA-Public Use
  Company Number: US-AMGEN-USASP2010003596

PATIENT
  Age: 50 Year
  Sex: Female

DRUGS (2)
  1. ENBREL [Suspect]
     Indication: OSTEOARTHRITIS
  2. ENBREL [Suspect]
     Indication: RHEUMATOID ARTHRITIS
     Dosage: 50 MG, QWK
     Dates: start: 20100804, end: 20101101

REACTIONS (8)
  - COUGH [None]
  - EAR PAIN [None]
  - HEADACHE [None]
  - MOBILITY DECREASED [None]
  - PARANASAL SINUS HYPERSECRETION [None]
  - FATIGUE [None]
  - DRUG INEFFECTIVE [None]
  - PAIN IN EXTREMITY [None]
